FAERS Safety Report 19130235 (Version 1)
Quarter: 2021Q2

REPORT INFORMATION
  Report Type: Spontaneous
  Country: US (occurrence: US)
  Receive Date: 20210414
  Receipt Date: 20210414
  Transmission Date: 20210717
  Serious: Yes (Hospitalization, Other)
  Sender: FDA-Public Use
  Company Number: US-BRISTOL-MYERS SQUIBB COMPANY-BMS-2021-032938

PATIENT
  Age: 71 Year
  Sex: Female
  Weight: 56.2 kg

DRUGS (3)
  1. WARFARIN SODIUM. [Suspect]
     Active Substance: WARFARIN SODIUM
     Indication: PRODUCT USED FOR UNKNOWN INDICATION
     Dosage: UNK
     Route: 065
  2. SILDENAFIL CITRATE. [Concomitant]
     Active Substance: SILDENAFIL CITRATE
     Indication: PRODUCT USED FOR UNKNOWN INDICATION
     Dosage: UNK
     Route: 065
  3. REMODULIN [Suspect]
     Active Substance: TREPROSTINIL
     Indication: PULMONARY ARTERIAL HYPERTENSION
     Dosage: 0.070 UG/KG
     Route: 058
     Dates: start: 20170313

REACTIONS (11)
  - Pyrexia [Unknown]
  - Confusional state [Unknown]
  - Hypersomnia [Unknown]
  - Thrombosis [Unknown]
  - Intra-abdominal haemorrhage [Unknown]
  - Faeces discoloured [Not Recovered/Not Resolved]
  - Intestinal pseudo-obstruction [Unknown]
  - Acute kidney injury [Unknown]
  - Haemoglobin decreased [Unknown]
  - Mental status changes [Unknown]
  - Loss of consciousness [Unknown]

NARRATIVE: CASE EVENT DATE: 20210225
